FAERS Safety Report 5634855-X (Version None)
Quarter: 2008Q1

REPORT INFORMATION
  Report Type: 
  Country: None (occurrence: None)
  Receive Date: 20080221
  Receipt Date: 20080221
  Transmission Date: 20080703
  Serious: Yes (Hospitalization)
  Sender: FDA-Public Use
  Company Number: None

PATIENT
  Age: 66 Year
  Sex: Male

DRUGS (2)
  1. VALSARTAN [Suspect]
     Indication: CARDIOMYOPATHY
     Dosage: 320MG EVERY DAY PO
     Route: 048
     Dates: start: 20060315
  2. VALSARTAN [Suspect]
     Indication: HYPERTENSION
     Dosage: 320MG EVERY DAY PO
     Route: 048
     Dates: start: 20060315

REACTIONS (5)
  - DRY MOUTH [None]
  - HYPERKALAEMIA [None]
  - ORAL INTAKE REDUCED [None]
  - ORTHOPNOEA [None]
  - RENAL FAILURE ACUTE [None]
